FAERS Safety Report 16289377 (Version 3)
Quarter: 2019Q2

REPORT INFORMATION
  Report Type: Spontaneous
  Country: US (occurrence: US)
  Receive Date: 20190509
  Receipt Date: 20190618
  Transmission Date: 20190711
  Serious: No
  Sender: FDA-Public Use
  Company Number: US-GW PHARMA-201903USGW0704

PATIENT

DRUGS (3)
  1. EPIDIOLEX [Suspect]
     Active Substance: CANNABIDIOL
     Dosage: 14.7 MG/KG, 250 MILLIGRAM, BID
     Route: 048
  2. EPIDIOLEX [Suspect]
     Active Substance: CANNABIDIOL
     Indication: EPILEPSY
     Dosage: 11.8 MG/KG, 200 MILLIGRAM, BID
     Route: 048
     Dates: start: 201812
  3. CARBAMAZEPINE. [Concomitant]
     Active Substance: CARBAMAZEPINE
     Indication: PRODUCT USED FOR UNKNOWN INDICATION
     Dosage: 200 MG IN MORNING, 300 MG AT NIGHT
     Route: 065

REACTIONS (6)
  - Fall [Unknown]
  - Seizure [Unknown]
  - Liquid product physical issue [Unknown]
  - Dyskinesia [Unknown]
  - Focal dyscognitive seizures [Unknown]
  - Atonic seizures [Unknown]
